FAERS Safety Report 15869781 (Version 3)
Quarter: 2020Q4

REPORT INFORMATION
  Report Type: Spontaneous
  Country: US (occurrence: US)
  Receive Date: 20190125
  Receipt Date: 20201222
  Transmission Date: 20210113
  Serious: No
  Sender: FDA-Public Use
  Company Number: US-JAZZ-JPI-P-034208

PATIENT
  Sex: Male
  Weight: 68.18 kg

DRUGS (4)
  1. XYREM [Suspect]
     Active Substance: SODIUM OXYBATE
     Indication: NARCOLEPSY
     Dosage: UNSPECIFIED SINGLE DOSE
     Route: 048
     Dates: start: 200410
  2. XYREM [Suspect]
     Active Substance: SODIUM OXYBATE
     Dosage: UNSPECIFIED SINGLE DOSE
     Route: 048
     Dates: start: 201307
  3. GABAPENTIN. [Concomitant]
     Active Substance: GABAPENTIN
     Indication: PAIN
     Dosage: UNSPECIFIED SINGLE DOSE
  4. XYREM [Suspect]
     Active Substance: SODIUM OXYBATE
     Indication: CATAPLEXY
     Dosage: 4.5 G, BID
     Route: 048
     Dates: end: 201204

REACTIONS (1)
  - Treatment noncompliance [Unknown]
